FAERS Safety Report 21258367 (Version 1)
Quarter: 2022Q3

REPORT INFORMATION
  Report Type: Spontaneous
  Country: US (occurrence: US)
  Receive Date: 20220826
  Receipt Date: 20220826
  Transmission Date: 20221026
  Serious: No
  Sender: FDA-Public Use
  Company Number: US-TARO PHARMACEUTICALS USA INC.-2022TAR00248

PATIENT

DRUGS (1)
  1. TERBINAFINE [Suspect]
     Active Substance: TERBINAFINE
     Indication: Nail disorder
     Dosage: ON THE NAIL
     Route: 061

REACTIONS (3)
  - Onychoclasis [Unknown]
  - Off label use [Unknown]
  - Product quality issue [Unknown]

NARRATIVE: CASE EVENT DATE: 20220221
